FAERS Safety Report 15340794 (Version 1)
Quarter: 2018Q3

REPORT INFORMATION
  Report Type: Report from Study
  Country: AU (occurrence: AU)
  Receive Date: 20180831
  Receipt Date: 20180831
  Transmission Date: 20181010
  Serious: Yes (Other)
  Sender: FDA-Public Use
  Company Number: AU-GILEAD-2018-0361079

PATIENT
  Sex: Male
  Weight: 50 kg

DRUGS (5)
  1. MYCOPHENOLATE [Concomitant]
     Active Substance: MYCOPHENOLIC ACID
  2. PANTOPRAZOLE [Concomitant]
     Active Substance: PANTOPRAZOLE
  3. GLICLAZIDE [Concomitant]
     Active Substance: GLICLAZIDE
  4. ADEFOVIR DIPIVOXIL. [Suspect]
     Active Substance: ADEFOVIR DIPIVOXIL
     Indication: HEPATITIS B
     Dosage: UNK
     Route: 065
     Dates: start: 2004
  5. LAMIVUDINE. [Concomitant]
     Active Substance: LAMIVUDINE

REACTIONS (5)
  - Drug resistance [Unknown]
  - Fanconi syndrome acquired [Not Recovered/Not Resolved]
  - Rib fracture [Unknown]
  - Osteomalacia [Not Recovered/Not Resolved]
  - Osteoporosis [Unknown]

NARRATIVE: CASE EVENT DATE: 2015
